FAERS Safety Report 23548512 (Version 1)
Quarter: 2024Q1

REPORT INFORMATION
  Report Type: Spontaneous
  Country: US (occurrence: None)
  Receive Date: 20240219
  Receipt Date: 20240219
  Transmission Date: 20240410
  Serious: Yes (Disabling)
  Sender: FDA-Public Use
  Company Number: None

PATIENT
  Age: 41 Year
  Sex: Male
  Weight: 69.75 kg

DRUGS (1)
  1. CIPROFLOXACIN [Suspect]
     Active Substance: CIPROFLOXACIN
     Dosage: OTHER QUANTITY : 1 TABLET(S);?FREQUENCY : EVERY 12 HOURS;?
     Route: 048
     Dates: start: 20231006, end: 20231016

REACTIONS (8)
  - Weight decreased [None]
  - Urinary tract infection [None]
  - Vision blurred [None]
  - Insomnia [None]
  - Neuropathy peripheral [None]
  - Tendon disorder [None]
  - Tinnitus [None]
  - Mitochondrial toxicity [None]

NARRATIVE: CASE EVENT DATE: 20231009
